FAERS Safety Report 7912930-4 (Version None)
Quarter: 2011Q4

REPORT INFORMATION
  Report Type: 
  Country: None (occurrence: None)
  Receive Date: 20111114
  Receipt Date: 20111031
  Transmission Date: 20120403
  Serious: Yes (Death, Other)
  Sender: FDA-Public Use
  Company Number: US-SANOFI-AVENTIS-2011SA071465

PATIENT
  Age: 73 Year
  Sex: Female

DRUGS (3)
  1. RITUXIMAB [Suspect]
     Indication: RHEUMATOID ARTHRITIS
     Dosage: 2 1000 MG INFUSIONS AT A 2 WEEK INTERVAL FOR EACH COURSE.
     Route: 042
     Dates: start: 20090201
  2. LEFLUNOMIDE [Suspect]
     Indication: RHEUMATOID ARTHRITIS
     Route: 065
     Dates: start: 20061101, end: 20090801
  3. HYDROXYCHLOROQUINE SULFATE [Concomitant]
     Dates: start: 20080301, end: 20090801

REACTIONS (7)
  - PROGRESSIVE MULTIFOCAL LEUKOENCEPHALOPATHY [None]
  - NUCLEAR MAGNETIC RESONANCE IMAGING [None]
  - DYSAESTHESIA [None]
  - IMMUNE RECONSTITUTION SYNDROME [None]
  - ATAXIA [None]
  - MUSCLE SPASMS [None]
  - APHASIA [None]
